FAERS Safety Report 15690640 (Version 1)
Quarter: 2018Q4

REPORT INFORMATION
  Report Type: Spontaneous
  Country: IT (occurrence: IT)
  Receive Date: 20181205
  Receipt Date: 20181205
  Transmission Date: 20190205
  Serious: Yes (Hospitalization)
  Sender: FDA-Public Use
  Company Number: IT-TEVA-2018-IT-981898

PATIENT
  Age: 79 Year
  Sex: Male

DRUGS (3)
  1. ASPIRINA [Suspect]
     Active Substance: ASPIRIN
     Route: 048
  2. KARVEA [Suspect]
     Active Substance: IRBESARTAN
     Route: 048
  3. BISOPROLOLO ACTAVIS [Suspect]
     Active Substance: BISOPROLOL FUMARATE
     Route: 065

REACTIONS (2)
  - Hyperhidrosis [Unknown]
  - Presyncope [Unknown]

NARRATIVE: CASE EVENT DATE: 20180106
